FAERS Safety Report 7222664-X (Version None)
Quarter: 2011Q1

REPORT INFORMATION
  Report Type: 
  Country: None (occurrence: None)
  Receive Date: 20110106
  Receipt Date: 20110106
  Transmission Date: 20110831
  Serious: Yes (Life-Threatening, Hospitalization, Disabling, Other)
  Sender: FDA-Public Use
  Company Number: None

PATIENT
  Sex: Female
  Weight: 72.5755 kg

DRUGS (2)
  1. RISPERDAL [Suspect]
     Indication: INSOMNIA
     Dosage: ONE PILL AT BEDTIME
     Dates: start: 20101029, end: 20101119
  2. BACTRIM DS [Suspect]
     Indication: URINARY TRACT INFECTION
     Dosage: 1 PILL 2 TIMES DAY
     Dates: start: 20101119, end: 20101123

REACTIONS (11)
  - RASH [None]
  - HYPERTENSION [None]
  - MULTIPLE ALLERGIES [None]
  - CHEST PAIN [None]
  - ASTHENIA [None]
  - PAIN [None]
  - IMPAIRED WORK ABILITY [None]
  - VOMITING [None]
  - URINARY TRACT INFECTION [None]
  - DIARRHOEA [None]
  - SKIN DISORDER [None]
